FAERS Safety Report 4995617-X (Version None)
Quarter: 2006Q1

REPORT INFORMATION
  Report Type: 
  Country: None (occurrence: None)
  Receive Date: 20060315
  Receipt Date: 20060106
  Transmission Date: 20060701
  Serious: Yes (Other)
  Sender: FDA-Public Use
  Company Number: 431467

PATIENT
  Age: 50 Year
  Sex: Female
  Weight: 51.7 kg

DRUGS (1)
  1. BONIVA [Suspect]
     Indication: OSTEOPOROSIS
     Dosage: 1 PER MONTH ORAL
     Route: 048
     Dates: start: 20051015

REACTIONS (3)
  - BONE PAIN [None]
  - MYALGIA [None]
  - PARAESTHESIA [None]
